FAERS Safety Report 5215284-X (Version None)
Quarter: 2006Q4

REPORT INFORMATION
  Report Type: 
  Country: None (occurrence: None)
  Receive Date: 20061122
  Receipt Date: 20051107
  Transmission Date: 20070319
  Serious: Yes (Other)
  Sender: FDA-Public Use
  Company Number: HQWYE465909NOV05

PATIENT
  Age: 61 Year
  Sex: Female
  Weight: 72.64 kg

DRUGS (4)
  1. PREMARIN [Suspect]
     Indication: VULVOVAGINAL DRYNESS
     Dosage: 1 GRAM TWICE A WEEK, VAGINAL
     Route: 067
     Dates: start: 20050101
  2. CELEBREX [Concomitant]
  3. LOVASTATIN [Concomitant]
  4. DEXAMETHASONE TAB [Concomitant]

REACTIONS (3)
  - FUNGAL INFECTION [None]
  - KIDNEY INFECTION [None]
  - SINUSITIS [None]
